FAERS Safety Report 25959679 (Version 1)
Quarter: 2025Q4

REPORT INFORMATION
  Report Type: Spontaneous
  Country: US (occurrence: US)
  Receive Date: 20251026
  Receipt Date: 20251026
  Transmission Date: 20260117
  Serious: No
  Sender: ALEXION PHARMACEUTICALS
  Company Number: US-AstraZeneca-CH-00978102A

PATIENT
  Age: 73 Year
  Sex: Female

DRUGS (1)
  1. BEVESPI AEROSPHERE [Suspect]
     Active Substance: FORMOTEROL FUMARATE\GLYCOPYRROLATE
     Route: 065

REACTIONS (7)
  - Product dose omission issue [Unknown]
  - Oxygen therapy [Unknown]
  - Oxygen consumption decreased [Unknown]
  - Oxygen saturation abnormal [Unknown]
  - Wrong technique in device usage process [Unknown]
  - Intentional product use issue [Unknown]
  - Dyspnoea [Unknown]

NARRATIVE: CASE EVENT DATE: 20251001
